FAERS Safety Report 25287576 (Version 1)
Quarter: 2025Q2

REPORT INFORMATION
  Report Type: Spontaneous
  Country: PL (occurrence: PL)
  Receive Date: 20250509
  Receipt Date: 20250509
  Transmission Date: 20250716
  Serious: Yes (Other)
  Sender: BOEHRINGER INGELHEIM
  Company Number: None

PATIENT
  Age: 69 Year
  Sex: Female

DRUGS (4)
  1. PRADAXA [Suspect]
     Active Substance: DABIGATRAN ETEXILATE MESYLATE
     Indication: Anticoagulant therapy
     Dosage: THERAPY ONGOING; DOSE: 1 UNIT UNKNOWN
     Dates: start: 20211001
  2. CONCOR COR 3,75 MG TABLETKI POWLEKANE [Concomitant]
     Indication: Product used for unknown indication
     Dosage: DURATION: FROM 10 YEARS; IN THE MORNING
  3. CONCOR COR 3,75 MG TABLETKI POWLEKANE [Concomitant]
     Dosage: DURATION: FROM 10 YEARS; IN THE EVENING
  4. EUTHYROX N 50 MIKROGRAM?W TABLETKI [Concomitant]
     Indication: Hypothyroidism
     Dosage: DOSE: 1 UNIT UNKNOWN; DURATION: FROM 15 YEARS

REACTIONS (9)
  - Restlessness [Not Recovered/Not Resolved]
  - Arrhythmia [Not Recovered/Not Resolved]
  - Anxiety [Not Recovered/Not Resolved]
  - Diarrhoea [Recovered/Resolved]
  - Abdominal pain upper [Not Recovered/Not Resolved]
  - Nausea [Not Recovered/Not Resolved]
  - Dyspepsia [Not Recovered/Not Resolved]
  - Headache [Not Recovered/Not Resolved]
  - Blood pressure fluctuation [Not Recovered/Not Resolved]
